FAERS Safety Report 9541478 (Version 1)
Quarter: 2013Q3

REPORT INFORMATION
  Report Type: Spontaneous
  Country: US (occurrence: None)
  Receive Date: 20130919
  Receipt Date: 20130919
  Transmission Date: 20140515
  Serious: Yes (Other)
  Sender: FDA-Public Use
  Company Number: None

PATIENT
  Age: 75 Year
  Sex: Male

DRUGS (1)
  1. EXJADE 500MG NOVARTIS [Suspect]
     Indication: IRON OVERLOAD
     Dosage: 1500MG QD PO
     Route: 048
     Dates: start: 20130726

REACTIONS (1)
  - Fatigue [None]
